FAERS Safety Report 16197210 (Version 3)
Quarter: 2019Q3

REPORT INFORMATION
  Report Type: Spontaneous
  Country: US (occurrence: US)
  Receive Date: 20190415
  Receipt Date: 20190709
  Transmission Date: 20191004
  Serious: No
  Sender: FDA-Public Use
  Company Number: US-PFIZER INC-2019157664

PATIENT
  Age: 31 Year
  Sex: Female
  Weight: 58.97 kg

DRUGS (4)
  1. PRISTIQ EXTENDED-RELEASE [Suspect]
     Active Substance: DESVENLAFAXINE SUCCINATE
     Dosage: 75 MG, 1X/DAY(3 TABS EVERY MORNING)
  2. PRISTIQ EXTENDED-RELEASE [Suspect]
     Active Substance: DESVENLAFAXINE SUCCINATE
     Indication: BIPOLAR II DISORDER
     Dosage: 100 MG, DAILY
     Route: 048
     Dates: start: 2017
  3. PRISTIQ EXTENDED-RELEASE [Suspect]
     Active Substance: DESVENLAFAXINE SUCCINATE
     Dosage: 75 MG, UNK
  4. LAMOTRIGINE. [Suspect]
     Active Substance: LAMOTRIGINE
     Indication: BIPOLAR II DISORDER
     Dosage: 100 MG, 2X/DAY
     Route: 048
     Dates: start: 2017

REACTIONS (3)
  - Therapeutic product effect increased [Unknown]
  - Off label use [Unknown]
  - Product use in unapproved indication [Unknown]
